FAERS Safety Report 11604733 (Version 1)
Quarter: 2015Q4

REPORT INFORMATION
  Report Type: Spontaneous
  Country: US (occurrence: None)
  Receive Date: 20151006
  Receipt Date: 20151006
  Transmission Date: 20160304
  Serious: Yes (Other)
  Sender: FDA-Public Use
  Company Number: None

PATIENT
  Age: 79 Year
  Sex: Female
  Weight: 61.24 kg

DRUGS (8)
  1. LEVETIRACETAM 750MG [Suspect]
     Active Substance: LEVETIRACETAM
     Indication: SEIZURE
     Dosage: 2/3/15 250MG?2/24/15 750MG
     Route: 048
     Dates: start: 20150224, end: 20150227
  2. CALCIUM [Concomitant]
     Active Substance: CALCIUM
  3. LEVOTHYROXINE. [Concomitant]
     Active Substance: LEVOTHYROXINE
  4. VIT B-12 [Concomitant]
  5. VIT-D [Concomitant]
  6. MOBIC [Concomitant]
     Active Substance: MELOXICAM
  7. ASPIRIN. [Concomitant]
     Active Substance: ASPIRIN
  8. PRAVACHOL [Concomitant]
     Active Substance: PRAVASTATIN SODIUM

REACTIONS (9)
  - Mania [None]
  - Erythema [None]
  - Anxiety [None]
  - Panic reaction [None]
  - Aggression [None]
  - Paraesthesia oral [None]
  - Restlessness [None]
  - Oral mucosal erythema [None]
  - Oral disorder [None]

NARRATIVE: CASE EVENT DATE: 20150227
